FAERS Safety Report 4751680-2 (Version None)
Quarter: 2005Q3

REPORT INFORMATION
  Report Type: 
  Country: None (occurrence: None)
  Receive Date: 20050824
  Receipt Date: 20050815
  Transmission Date: 20060218
  Serious: Yes (Disabling)
  Sender: FDA-Public Use
  Company Number: US-KINGPHARMUSA00001-K200501074

PATIENT
  Age: 69 Year
  Sex: Male
  Weight: 82 kg

DRUGS (5)
  1. ALTACE [Suspect]
     Indication: HYPERTENSION
     Dosage: 2.5 MG, BID
     Route: 048
     Dates: start: 20010101
  2. ASPIRIN [Concomitant]
     Indication: CORONARY ARTERY SURGERY
  3. EZETIMIBE [Concomitant]
     Indication: BLOOD CHOLESTEROL INCREASED
     Dosage: 10 MG, UNK
  4. ACTRAPID (INSULIN) [Concomitant]
     Indication: DIABETES MELLITUS INSULIN-DEPENDENT
     Dosage: 11 U, UNK
  5. MIXTARD HUMAN 70/30 [Concomitant]
     Indication: DIABETES MELLITUS INSULIN-DEPENDENT
     Dosage: 26 U, UNK

REACTIONS (12)
  - ASTHENIA [None]
  - BLOOD IRON DECREASED [None]
  - BLOOD POTASSIUM INCREASED [None]
  - BLOOD SODIUM DECREASED [None]
  - DIFFICULTY IN WALKING [None]
  - DYSPHAGIA [None]
  - FATIGUE [None]
  - GENERAL PHYSICAL HEALTH DETERIORATION [None]
  - LETHARGY [None]
  - RED BLOOD CELL COUNT DECREASED [None]
  - SERUM FERRITIN DECREASED [None]
  - WHITE BLOOD CELL COUNT DECREASED [None]
